FAERS Safety Report 9524451 (Version 1)
Quarter: 2013Q3

REPORT INFORMATION
  Report Type: Spontaneous
  Country: US (occurrence: US)
  Receive Date: 20130916
  Receipt Date: 20130916
  Transmission Date: 20140515
  Serious: No
  Sender: FDA-Public Use
  Company Number: US-PFIZER INC-2013264997

PATIENT
  Age: 54 Year
  Sex: Male
  Weight: 120.18 kg

DRUGS (5)
  1. DILANTIN [Suspect]
     Indication: CONVULSION
     Dosage: 25 MG, 2X/DAY
     Route: 048
  2. DILANTIN [Suspect]
     Dosage: UNK
     Route: 048
  3. PHENYTOIN [Suspect]
     Indication: CONVULSION
     Dosage: 300 MG, 2X/DAY
     Dates: start: 1970
  4. PHENYTOIN [Suspect]
     Dosage: UNK
  5. RISPERIDONE [Concomitant]
     Indication: SLEEP DISORDER
     Dosage: UNK

REACTIONS (3)
  - Intentional drug misuse [Unknown]
  - Somnolence [Unknown]
  - Weight decreased [Unknown]
